FAERS Safety Report 11465698 (Version 3)
Quarter: 2015Q3

REPORT INFORMATION
  Report Type: Spontaneous
  Country: CN (occurrence: CN)
  Receive Date: 20150907
  Receipt Date: 20150928
  Transmission Date: 20151125
  Serious: Yes (Death, Life-Threatening)
  Sender: FDA-Public Use
  Company Number: CN-ROCHE-1630934

PATIENT
  Age: 85 Year
  Sex: Female

DRUGS (2)
  1. ROCEPHIN [Suspect]
     Active Substance: CEFTRIAXONE SODIUM
     Indication: ASTHMA
     Route: 041
     Dates: start: 20110607
  2. AVELOX (CHINA) [Concomitant]
     Indication: ASTHMA
     Route: 065
     Dates: start: 20150606

REACTIONS (2)
  - Anaphylactic shock [Not Recovered/Not Resolved]
  - Multi-organ failure [Fatal]

NARRATIVE: CASE EVENT DATE: 20110607
